APPROVED DRUG PRODUCT: SOHONOS
Active Ingredient: PALOVAROTENE
Strength: 2.5MG
Dosage Form/Route: CAPSULE;ORAL
Application: N215559 | Product #003
Applicant: IPSEN BIOPHARMACEUTICALS INC
Approved: Aug 16, 2023 | RLD: Yes | RS: No | Type: RX

PATENTS:
Patent 11622959 | Expires: Jun 8, 2037
Patent 10864194 | Expires: Jun 8, 2037
Patent 10292954 | Expires: Aug 31, 2031
Patent 9789074 | Expires: Aug 31, 2031
Patent 9314439 | Expires: Aug 31, 2031
Patent 12023312 | Expires: Aug 31, 2031
Patent 12458626 | Expires: Jun 8, 2037
Patent 12138245 | Expires: Jun 8, 2037
Patent 12201614 | Expires: Jun 8, 2037

EXCLUSIVITY:
Code: NCE | Date: Aug 16, 2028
Code: ODE-439 | Date: Aug 16, 2030